FAERS Safety Report 5323510-1 (Version None)
Quarter: 2007Q2

REPORT INFORMATION
  Report Type: 
  Country: None (occurrence: None)
  Receive Date: 20070509
  Receipt Date: 20070509
  Transmission Date: 20071010
  Serious: No
  Sender: FDA-Public Use
  Company Number: None

PATIENT
  Sex: Female
  Weight: 45.3597 kg

DRUGS (1)
  1. METROGEL [Suspect]
     Indication: VAGINITIS BACTERIAL
     Dosage: 1 X DAILY 5 DAYS VAG
     Route: 067

REACTIONS (2)
  - HEADACHE [None]
  - VAGINAL DISCHARGE [None]
